FAERS Safety Report 7879828-1 (Version None)
Quarter: 2011Q4

REPORT INFORMATION
  Report Type: 
  Country: None (occurrence: None)
  Receive Date: 20111101
  Receipt Date: 20111025
  Transmission Date: 20120403
  Serious: Yes (Death, Hospitalization, Other)
  Sender: FDA-Public Use
  Company Number: US-CELGENEUS-163-21880-11092004

PATIENT
  Age: 89 Year
  Sex: Male
  Weight: 63.56 kg

DRUGS (2)
  1. TRANSFUSIONS [Concomitant]
     Route: 041
  2. REVLIMID [Suspect]
     Indication: MULTIPLE MYELOMA
     Dosage: 15 MILLIGRAM
     Route: 048
     Dates: start: 20110118, end: 20111003

REACTIONS (5)
  - RESPIRATORY FAILURE [None]
  - MULTIPLE MYELOMA [None]
  - PAIN [None]
  - RENAL FAILURE [None]
  - PANCYTOPENIA [None]
